FAERS Safety Report 21331616 (Version 2)
Quarter: 2022Q4

REPORT INFORMATION
  Report Type: Spontaneous
  Country: US (occurrence: US)
  Receive Date: 20220914
  Receipt Date: 20221013
  Transmission Date: 20230113
  Serious: No
  Sender: FDA-Public Use
  Company Number: US-GSKCCFUS-Case-01491704_AE-85021

PATIENT
  Age: 55 Year
  Sex: Female

DRUGS (1)
  1. BENLYSTA [Suspect]
     Active Substance: BELIMUMAB
     Indication: Systemic lupus erythematosus
     Dosage: 200 MG/KG

REACTIONS (7)
  - Injection site haemorrhage [Unknown]
  - Injection site discharge [Unknown]
  - Exposure via skin contact [Unknown]
  - Accidental exposure to product [Unknown]
  - Incorrect dose administered [Unknown]
  - Incorrect disposal of product [Unknown]
  - Product complaint [Unknown]

NARRATIVE: CASE EVENT DATE: 20220902
